FAERS Safety Report 14127405 (Version 1)
Quarter: 2017Q4

REPORT INFORMATION
  Report Type: Spontaneous
  Country: US (occurrence: US)
  Receive Date: 20171026
  Receipt Date: 20171026
  Transmission Date: 20180321
  Serious: No
  Sender: FDA-Public Use
  Company Number: US-TEVA-762910USA

PATIENT

DRUGS (1)
  1. CARBIDOPA AND LEVODOPA [Suspect]
     Active Substance: CARBIDOPA\LEVODOPA
     Dosage: 25/100MG
     Route: 065

REACTIONS (3)
  - Gait disturbance [Unknown]
  - Drug ineffective [Unknown]
  - Dysgraphia [Unknown]
